FAERS Safety Report 9365710 (Version 1)
Quarter: 2013Q2

REPORT INFORMATION
  Report Type: Spontaneous
  Country: US (occurrence: US)
  Receive Date: 20130625
  Receipt Date: 20130625
  Transmission Date: 20140414
  Serious: No
  Sender: FDA-Public Use
  Company Number: US-009507513-1306USA010770

PATIENT
  Age: 57 Year
  Sex: Male

DRUGS (1)
  1. PROVENTIL [Suspect]
     Indication: CHRONIC OBSTRUCTIVE PULMONARY DISEASE
     Dosage: UPTO 4 PUFFS PER DAY
     Route: 055
     Dates: start: 20081108, end: 20130529

REACTIONS (1)
  - Breath alcohol test positive [Unknown]
